FAERS Safety Report 6873593-2 (Version None)
Quarter: 2010Q3

REPORT INFORMATION
  Report Type: 
  Country: None (occurrence: None)
  Receive Date: 20100723
  Receipt Date: 20100720
  Transmission Date: 20110219
  Serious: Yes (Death)
  Sender: FDA-Public Use
  Company Number: US-AMGEN-QUU414568

PATIENT
  Sex: Male
  Weight: 62 kg

DRUGS (1)
  1. NPLATE [Suspect]
     Indication: THROMBOCYTOPENIA
     Dates: start: 20091208, end: 20091228

REACTIONS (2)
  - HIV INFECTION [None]
  - LYMPHOMA [None]
